FAERS Safety Report 6105657-5 (Version None)
Quarter: 2009Q1

REPORT INFORMATION
  Report Type: 
  Country: None (occurrence: None)
  Receive Date: 20090306
  Receipt Date: 20090226
  Transmission Date: 20090719
  Serious: Yes (Life-Threatening, Hospitalization)
  Sender: FDA-Public Use
  Company Number: DE-ELI_LILLY_AND_COMPANY-DE200903000271

PATIENT
  Age: 51 Year
  Sex: Female
  Weight: 55 kg

DRUGS (4)
  1. HUMALOG [Suspect]
     Indication: TYPE 2 DIABETES MELLITUS
     Route: 058
     Dates: start: 20050101, end: 20081030
  2. INSULIN BASAL /NOR/ [Concomitant]
     Indication: TYPE 2 DIABETES MELLITUS
     Dosage: 13 IU, EACH MORNING
     Route: 058
     Dates: start: 20080901, end: 20081030
  3. INSULIN BASAL /NOR/ [Concomitant]
     Dosage: 13 IU, EACH EVENING
     Route: 058
     Dates: start: 20080901, end: 20081030
  4. OPIPRAMOL [Concomitant]
     Indication: ANXIETY
     Dosage: 50 MG, DAILY (1/D)
     Route: 048

REACTIONS (1)
  - HYPOGLYCAEMIC COMA [None]
